FAERS Safety Report 6060163-1 (Version None)
Quarter: 2009Q1

REPORT INFORMATION
  Report Type: 
  Country: None (occurrence: None)
  Receive Date: 20090128
  Receipt Date: 20090112
  Transmission Date: 20090719
  Serious: Yes (Other)
  Sender: FDA-Public Use
  Company Number: 2009S1000670

PATIENT
  Age: 80 Year
  Sex: Female

DRUGS (13)
  1. ENALAPRIL MALEATE [Suspect]
     Indication: HYPERTENSION
     Dosage: 10 MG;TWICE A DAY ORAL
     Route: 048
  2. CARVEDILOL [Suspect]
     Indication: HYPERTENSION
     Dosage: 12.5 MG;DAILY ORAL
     Route: 048
  3. LANTUS [Suspect]
     Indication: TYPE 2 DIABETES MELLITUS
     Dosage: 36 LU; DAILY SUBCUTANEOUS
     Route: 058
     Dates: start: 20080219
  4. INSULIN [Suspect]
     Indication: TYPE 2 DIABETES MELLITUS
     Dosage: 30 IU SUBCUTANEOUS
     Route: 058
     Dates: start: 20080219
  5. ACETYLSALICYLIC ACID SRT [Concomitant]
  6. CALCIMAGON /00108001/ (CALCIUM CARBONATE) [Concomitant]
  7. L-THYROXINE /00068001/ (LEVOTHYROXINE) [Concomitant]
  8. OMEPRAZOLE [Concomitant]
  9. PARACODIN N (DIHYDROCODEINE) [Concomitant]
  10. PREDNISOLONE [Concomitant]
  11. RISPERIDONE [Concomitant]
  12. SALBUTAMOL (SALBUTAMOL) [Concomitant]
  13. TORSEMIDE [Concomitant]

REACTIONS (2)
  - DRUG INTERACTION [None]
  - HYPOGLYCAEMIA [None]
